FAERS Safety Report 4796512-1 (Version None)
Quarter: 2005Q3

REPORT INFORMATION
  Report Type: 
  Country: None (occurrence: None)
  Receive Date: 20050916
  Receipt Date: 20041015
  Transmission Date: 20060218
  Serious: Yes (Other)
  Sender: FDA-Public Use
  Company Number: US-JNJFOC-20041005295

PATIENT
  Age: 7 Year
  Sex: Male
  Weight: 18.1439 kg

DRUGS (4)
  1. TOPAMAX [Suspect]
     Indication: CONVULSION
     Dosage: 15 MG, 11 IN 1 DAY
  2. TEGRETOL [Concomitant]
  3. PHENOBARBITAL TAB [Concomitant]
  4. DIASTAT [Concomitant]

REACTIONS (1)
  - CONVULSION [None]
